FAERS Safety Report 6048184-6 (Version None)
Quarter: 2009Q1

REPORT INFORMATION
  Report Type: 
  Country: None (occurrence: None)
  Receive Date: 20090123
  Receipt Date: 20090114
  Transmission Date: 20090719
  Serious: Yes (Death)
  Sender: FDA-Public Use
  Company Number: DE-AVENTIS-200910131DE

PATIENT
  Age: 57 Year
  Sex: Male

DRUGS (3)
  1. DOCETAXEL [Suspect]
     Indication: NON-SMALL CELL LUNG CANCER
     Route: 041
     Dates: start: 20090112, end: 20090112
  2. CETUXIMAB [Suspect]
     Indication: NON-SMALL CELL LUNG CANCER
     Route: 041
     Dates: start: 20090112, end: 20090112
  3. GEMCITABINE [Suspect]
     Indication: NON-SMALL CELL LUNG CANCER
     Route: 041
     Dates: start: 20081201, end: 20081201

REACTIONS (2)
  - ARTERIAL INJURY [None]
  - HAEMORRHAGE [None]
